FAERS Safety Report 15418153 (Version 1)
Quarter: 2018Q3

REPORT INFORMATION
  Report Type: Spontaneous
  Country: US (occurrence: US)
  Receive Date: 20180924
  Receipt Date: 20180924
  Transmission Date: 20181010
  Serious: Yes (Hospitalization)
  Sender: FDA-Public Use
  Company Number: US-ASTELLAS-2018US041174

PATIENT
  Age: 59 Year
  Sex: Male

DRUGS (1)
  1. XTANDI [Suspect]
     Active Substance: ENZALUTAMIDE
     Indication: PROSTATE CANCER
     Route: 048
     Dates: start: 20180807

REACTIONS (4)
  - Drug dose omission [Unknown]
  - Insomnia [Unknown]
  - Intracranial mass [Unknown]
  - Dehydration [Unknown]

NARRATIVE: CASE EVENT DATE: 20180902
